FAERS Safety Report 14515766 (Version 1)
Quarter: 2018Q1

REPORT INFORMATION
  Report Type: Spontaneous
  Country: FR (occurrence: FR)
  Receive Date: 20180211
  Receipt Date: 20180211
  Transmission Date: 20180509
  Serious: Yes (Other)
  Sender: FDA-Public Use
  Company Number: FR-CONCORDIA PHARMACEUTICALS INC.-E2B_00009821

PATIENT
  Sex: Male
  Weight: 85 kg

DRUGS (2)
  1. TAREG [Concomitant]
     Active Substance: VALSARTAN
     Route: 065
  2. PREDNISOLONE. [Suspect]
     Active Substance: PREDNISOLONE
     Indication: TINNITUS
     Route: 048
     Dates: start: 201801, end: 201801

REACTIONS (3)
  - Photophobia [Unknown]
  - Product use in unapproved indication [Unknown]
  - Cataract [Not Recovered/Not Resolved]

NARRATIVE: CASE EVENT DATE: 201801
